FAERS Safety Report 23020460 (Version 1)
Quarter: 2023Q4

REPORT INFORMATION
  Report Type: Other
  Country: None (occurrence: US)
  Receive Date: 20231003
  Receipt Date: 20231003
  Transmission Date: 20240110
  Serious: Yes (Other)
  Sender: FDA-Public Use
  Company Number: US-Marksans Pharma Limited-2146591

PATIENT
  Age: 50 Year
  Sex: Female

DRUGS (6)
  1. GABAPENTIN [Suspect]
     Active Substance: GABAPENTIN
     Indication: Neuralgia
     Route: 065
  2. DOCUSATE [Concomitant]
     Active Substance: DOCUSATE
     Route: 065
  3. INSULIN GLARGINE [Concomitant]
     Active Substance: INSULIN GLARGINE
     Route: 065
  4. ONDANSETRON [Concomitant]
     Active Substance: ONDANSETRON
     Route: 065
  5. PANTOPRAZOLE SODIUM [Concomitant]
     Active Substance: PANTOPRAZOLE SODIUM
     Route: 065
  6. SEVELAMER [Concomitant]
     Active Substance: SEVELAMER
     Route: 065

REACTIONS (4)
  - End stage renal disease [Unknown]
  - Condition aggravated [Recovered/Resolved]
  - Myoclonus [Recovered/Resolved]
  - Off label use [Unknown]
